FAERS Safety Report 15093706 (Version 5)
Quarter: 2018Q4

REPORT INFORMATION
  Report Type: Spontaneous
  Country: DE (occurrence: DE)
  Receive Date: 20180629
  Receipt Date: 20181011
  Transmission Date: 20190204
  Serious: Yes (Hospitalization, Other)
  Sender: FDA-Public Use
  Company Number: PHHY2018DE031634

PATIENT
  Sex: Male

DRUGS (1)
  1. EXTAVIA [Suspect]
     Active Substance: INTERFERON BETA-1B
     Indication: MULTIPLE SCLEROSIS
     Dosage: 250 UG/ML/1.0 ML, EVERY OTHER DAY
     Route: 058
     Dates: end: 20180708

REACTIONS (5)
  - Injection site abscess [Not Recovered/Not Resolved]
  - Sepsis [Recovered/Resolved]
  - Calcification of muscle [Not Recovered/Not Resolved]
  - Needle issue [Unknown]
  - Syringe issue [Unknown]

NARRATIVE: CASE EVENT DATE: 20180521
